FAERS Safety Report 23886110 (Version 1)
Quarter: 2024Q2

REPORT INFORMATION
  Report Type: Spontaneous
  Country: NL (occurrence: NL)
  Receive Date: 20240522
  Receipt Date: 20240522
  Transmission Date: 20240715
  Serious: Yes (Life-Threatening)
  Sender: FDA-Public Use
  Company Number: None

PATIENT
  Age: 68 Year
  Sex: Male
  Weight: 90 kg

DRUGS (2)
  1. LABETALOL [Suspect]
     Active Substance: LABETALOL\LABETALOL HYDROCHLORIDE
     Indication: Hypertension
     Dosage: DOSAGE: 5 MG/ML INJECTION FLUID,  INJVLST / BRAND NAME NOT SPECIFIED
     Route: 065
     Dates: start: 20240320, end: 20240320
  2. ALTEPLASE [Suspect]
     Active Substance: ALTEPLASE
     Indication: Thrombolysis
     Dosage: 81MG OF WHICH 10% OF THE DOSE AS A BOLUS GIFT, ALTEPLASE 50MG /  VIAL 50MG + SOLVENS 50ML
     Route: 065
     Dates: start: 20240320, end: 20240320

REACTIONS (3)
  - Respiratory failure [Recovered/Resolved]
  - Hypertension [Recovered/Resolved]
  - Pallor [Recovered/Resolved]
